FAERS Safety Report 9920446 (Version 1)
Quarter: 2014Q1

REPORT INFORMATION
  Report Type: Spontaneous
  Country: US (occurrence: US)
  Receive Date: 20140224
  Receipt Date: 20140224
  Transmission Date: 20141002
  Serious: No
  Sender: FDA-Public Use
  Company Number: US-LUNDBECK-DKLU1096961

PATIENT
  Sex: Male

DRUGS (2)
  1. SABRIL (TABLET) [Suspect]
     Indication: PRODUCT USED FOR UNKNOWN INDICATION
  2. SABRIL (TABLET) [Suspect]

REACTIONS (2)
  - Thirst [Unknown]
  - Decreased appetite [Unknown]
